FAERS Safety Report 13047519 (Version 1)
Quarter: 2016Q4

REPORT INFORMATION
  Report Type: Spontaneous
  Country: US (occurrence: US)
  Receive Date: 20161220
  Receipt Date: 20161220
  Transmission Date: 20170207
  Serious: No
  Sender: FDA-Public Use
  Company Number: US-OMEROS CORPORATION-2016OME00031

PATIENT

DRUGS (1)
  1. OMIDRIA [Suspect]
     Active Substance: KETOROLAC\PHENYLEPHRINE

REACTIONS (2)
  - Posterior capsule rupture [Unknown]
  - Mydriasis [Recovered/Resolved]
